FAERS Safety Report 4898614-8 (Version None)
Quarter: 2006Q1

REPORT INFORMATION
  Report Type: 
  Country: None (occurrence: None)
  Receive Date: 20060202
  Receipt Date: 20051219
  Transmission Date: 20060701
  Serious: Yes (Hospitalization)
  Sender: FDA-Public Use
  Company Number: PL-AVENTIS-200521148GDDC

PATIENT
  Age: 55 Year
  Sex: Male
  Weight: 98 kg

DRUGS (2)
  1. DOCETAXEL [Suspect]
     Indication: PROSTATE CANCER
     Route: 042
     Dates: start: 20050404, end: 20051210
  2. ANTINEOPLASTIC AND IMMUNOSUPPRESSIVE AGENTS [Suspect]
     Indication: PROSTATE CANCER
     Route: 042
     Dates: start: 20050331, end: 20051213

REACTIONS (6)
  - BACK PAIN [None]
  - CATHETER RELATED INFECTION [None]
  - DISSEMINATED INTRAVASCULAR COAGULATION [None]
  - MOUTH HAEMORRHAGE [None]
  - PURPURA [None]
  - THROMBOCYTOPENIA [None]
